FAERS Safety Report 10444952 (Version 1)
Quarter: 2014Q3

REPORT INFORMATION
  Report Type: Spontaneous
  Country: CH (occurrence: CH)
  Receive Date: 20140910
  Receipt Date: 20140910
  Transmission Date: 20150326
  Serious: Yes (Death, Other)
  Sender: FDA-Public Use
  Company Number: CH-TEVA-506404ISR

PATIENT
  Age: 78 Year
  Sex: Female
  Weight: 60 kg

DRUGS (16)
  1. GARAMYCIN [Concomitant]
     Active Substance: GENTAMICIN SULFATE
     Dosage: 180 MILLIGRAM DAILY;
     Route: 048
     Dates: start: 20140601, end: 20140601
  2. DAFALGAN [Suspect]
     Active Substance: ACETAMINOPHEN
     Indication: PAIN
     Dosage: 4 GRAM DAILY;
     Route: 048
     Dates: start: 2014, end: 20140530
  3. DORMICUM [Concomitant]
     Active Substance: MIDAZOLAM\MIDAZOLAM HYDROCHLORIDE
     Dosage: 3.75 MILLIGRAM DAILY;
     Route: 048
     Dates: end: 20140530
  4. NOVALGIN DROPS [Concomitant]
     Indication: PROCEDURAL PAIN
     Dosage: 2000 MILLIGRAM DAILY;
     Route: 048
     Dates: end: 20140530
  5. KEFZOL [Suspect]
     Active Substance: CEFAZOLIN SODIUM
     Indication: ANTIBIOTIC PROPHYLAXIS
     Dosage: 48 GRAM DAILY;
     Route: 042
     Dates: start: 20140520, end: 20140520
  6. CO-APROVEL [Suspect]
     Active Substance: HYDROCHLOROTHIAZIDE\IRBESARTAN
     Indication: HYPERTENSION
     Route: 048
     Dates: start: 2014, end: 20140601
  7. XARELTO [Suspect]
     Active Substance: RIVAROXABAN
     Indication: THROMBOSIS PROPHYLAXIS
     Dosage: 10 MILLIGRAM DAILY;
     Route: 048
     Dates: start: 20140521, end: 20140530
  8. TRAMADOL-MEPHA [Concomitant]
     Active Substance: TRAMADOL
     Indication: PROCEDURAL PAIN
     Dosage: 200 MILLIGRAM DAILY;
     Route: 048
     Dates: end: 20140601
  9. HEPARIN [Concomitant]
     Active Substance: HEPARIN SODIUM
     Dosage: 20000 IU (INTERNATIONAL UNIT) DAILY; THERAPEUTIC DOSAGE
     Route: 065
     Dates: end: 20140601
  10. CALCIMAGON D3 [Concomitant]
     Active Substance: CALCIUM\CHOLECALCIFEROL
     Dosage: 1 DOSAGE FORMS DAILY; 1250 MG CALCIUM CARBONATE + 4 MG COLECALCIFEROL CONCENTRATE
     Route: 048
     Dates: end: 20140601
  11. PERENTEROL [Concomitant]
     Active Substance: SACCHAROMYCES CEREVISIAE
     Indication: DIARRHOEA
     Dosage: 1000 MILLIGRAM DAILY;
     Route: 048
     Dates: end: 20140530
  12. IMODIUM [Concomitant]
     Active Substance: LOPERAMIDE HYDROCHLORIDE
     Dosage: 8 MILLIGRAM DAILY;
     Route: 048
     Dates: end: 20140530
  13. BILOL [Concomitant]
     Active Substance: BISOPROLOL
     Indication: HYPERTENSIVE HEART DISEASE
     Dosage: 5 MILLIGRAM DAILY;
     Route: 048
     Dates: end: 20140601
  14. PASPERTIN [Concomitant]
     Active Substance: METOCLOPRAMIDE HYDROCHLORIDE
     Dosage: 40 MILLIGRAM DAILY;
     Route: 048
  15. ELTROXIN IF [Concomitant]
     Indication: HYPOTHYROIDISM
     Dosage: 150 MICROGRAM DAILY;
     Route: 048
     Dates: end: 20140530
  16. TAZOBAC [Concomitant]
     Active Substance: PIPERACILLIN SODIUM\TAZOBACTAM SODIUM
     Dosage: 13.5 MILLIGRAM DAILY;
     Route: 065
     Dates: end: 20140601

REACTIONS (10)
  - Septic shock [Fatal]
  - Multi-organ failure [Fatal]
  - Right ventricular failure [Fatal]
  - Drug ineffective [Fatal]
  - Pulmonary embolism [Fatal]
  - Deep vein thrombosis [Fatal]
  - Haemolytic anaemia [Unknown]
  - Renal infarct [Unknown]
  - Cor pulmonale acute [Fatal]
  - Jaundice acholuric [Unknown]

NARRATIVE: CASE EVENT DATE: 2014
